FAERS Safety Report 25733300 (Version 1)
Quarter: 2025Q3

REPORT INFORMATION
  Report Type: Spontaneous
  Country: US (occurrence: US)
  Receive Date: 20250828
  Receipt Date: 20250828
  Transmission Date: 20251021
  Serious: Yes (Life-Threatening, Hospitalization, Other)
  Sender: AUROBINDO
  Company Number: US-JNJFOC-20230155580

PATIENT
  Age: 64 Year
  Sex: Female

DRUGS (2)
  1. HYDROCORTISONE [Suspect]
     Active Substance: HYDROCORTISONE
     Indication: Chronic fatigue syndrome
     Route: 048
  2. HYDROCORTISONE [Suspect]
     Active Substance: HYDROCORTISONE
     Route: 048

REACTIONS (6)
  - Rhabdomyolysis [Unknown]
  - Hypertension [Recovering/Resolving]
  - Hypokalaemia [Recovering/Resolving]
  - Blood corticotrophin decreased [Recovering/Resolving]
  - Hyperadrenocorticism [Recovering/Resolving]
  - Intentional product use issue [Unknown]
